FAERS Safety Report 25045390 (Version 1)
Quarter: 2025Q1

REPORT INFORMATION
  Report Type: Spontaneous
  Country: US (occurrence: US)
  Receive Date: 20250306
  Receipt Date: 20250306
  Transmission Date: 20250409
  Serious: No
  Sender: TAKEDA
  Company Number: US-TAKEDA-2025TUS023421

PATIENT
  Sex: Female
  Weight: 84 kg

DRUGS (1)
  1. VYVANSE [Suspect]
     Active Substance: LISDEXAMFETAMINE DIMESYLATE
     Indication: Attention deficit hyperactivity disorder

REACTIONS (3)
  - Drug ineffective [Unknown]
  - Product quality issue [Unknown]
  - Disturbance in attention [Unknown]
